FAERS Safety Report 8122695-1 (Version None)
Quarter: 2012Q1

REPORT INFORMATION
  Report Type: 
  Country: None (occurrence: None)
  Receive Date: 20120208
  Receipt Date: 20120106
  Transmission Date: 20120608
  Serious: Yes (Other)
  Sender: FDA-Public Use
  Company Number: US-PURDUE-USA-2011-0074104

PATIENT
  Sex: Male

DRUGS (16)
  1. OXYCONTIN [Suspect]
     Indication: PAIN
     Dosage: UNK UNK, SEE TEXT
     Dates: start: 19991001, end: 20101122
  2. ROXICODONE [Suspect]
     Indication: PRODUCT USED FOR UNKNOWN INDICATION
     Dosage: UNK
     Dates: start: 19991001, end: 20101122
  3. ETHANOL [Suspect]
     Indication: PRODUCT USED FOR UNKNOWN INDICATION
  4. SEROQUEL [Concomitant]
     Indication: PRODUCT USED FOR UNKNOWN INDICATION
     Dosage: UNK, HS
  5. VIOXX [Concomitant]
     Indication: PRODUCT USED FOR UNKNOWN INDICATION
     Dosage: 50 MG, DAILY
  6. RELAFEN [Concomitant]
     Indication: PAIN
  7. NAPROSYN [Concomitant]
     Indication: PRODUCT USED FOR UNKNOWN INDICATION
     Dosage: 500 MG, BID
  8. YOHIMBINE [Concomitant]
     Indication: PRODUCT USED FOR UNKNOWN INDICATION
     Dosage: UNK, PRN
  9. OXYCODONE HCL [Suspect]
     Indication: PRODUCT USED FOR UNKNOWN INDICATION
     Dosage: UNK
     Dates: start: 19991001, end: 20101122
  10. AVINZA [Suspect]
     Indication: PRODUCT USED FOR UNKNOWN INDICATION
     Dosage: 100 MG, BID
  11. FLEXERIL [Concomitant]
     Indication: PRODUCT USED FOR UNKNOWN INDICATION
     Dosage: 20 MG, DAILY
  12. PERCOCET [Suspect]
     Indication: PAIN
     Dosage: 1 TABLET, Q4H PRN
  13. ACIPHEX [Concomitant]
     Indication: PRODUCT USED FOR UNKNOWN INDICATION
     Dosage: 20 MG, DAILY
  14. WELLBUTRIN [Concomitant]
     Indication: PRODUCT USED FOR UNKNOWN INDICATION
     Dosage: 150 MG, DAILY
  15. PERCOCET [Suspect]
     Dosage: 1 TABLET, Q8H PRN
  16. ANDROSTENEDIONE [Concomitant]
     Indication: PRODUCT USED FOR UNKNOWN INDICATION

REACTIONS (10)
  - UNEVALUABLE EVENT [None]
  - CONFUSIONAL STATE [None]
  - DIZZINESS [None]
  - SUBSTANCE ABUSE [None]
  - BRAIN INJURY [None]
  - PAIN [None]
  - MULTIPLE DRUG OVERDOSE [None]
  - DRUG DEPENDENCE [None]
  - ANXIETY [None]
  - MEMORY IMPAIRMENT [None]
